FAERS Safety Report 12239921 (Version 2)
Quarter: 2017Q1

REPORT INFORMATION
  Report Type: Spontaneous
  Country: US (occurrence: US)
  Receive Date: 20160405
  Receipt Date: 20170316
  Transmission Date: 20170428
  Serious: No
  Sender: FDA-Public Use
  Company Number: US-ROCHE-1701658

PATIENT
  Sex: Male

DRUGS (12)
  1. CRANBERRY. [Concomitant]
     Active Substance: CRANBERRY
  2. AQUAPHOR (UNITED STATES) [Concomitant]
  3. LUTEIN [Concomitant]
     Active Substance: LUTEIN
  4. SAW PALMETTO [Concomitant]
     Active Substance: SAW PALMETTO
  5. LYCOPENE [Concomitant]
     Active Substance: LYCOPENE
  6. BRIMONIDINE TARTRATE. [Concomitant]
     Active Substance: BRIMONIDINE TARTRATE
  7. ERIVEDGE [Suspect]
     Active Substance: VISMODEGIB
     Indication: BASAL CELL CARCINOMA
     Route: 048
     Dates: start: 20141020
  8. ERGOCALCIFEROL. [Concomitant]
     Active Substance: ERGOCALCIFEROL
  9. SALMON OIL [Concomitant]
     Active Substance: FISH OIL
  10. CINNAMON. [Concomitant]
     Active Substance: CINNAMON
  11. SIMVASTATIN. [Concomitant]
     Active Substance: SIMVASTATIN
  12. GLUCOSAMINE CHONDROITIN COMPLEX [Concomitant]
     Active Substance: CHONDROITIN SULFATE (BOVINE)\GLUCOSAMINE HYDROCHLORIDE

REACTIONS (4)
  - Alopecia [Not Recovered/Not Resolved]
  - Ageusia [Not Recovered/Not Resolved]
  - Dysgeusia [Unknown]
  - Muscle spasms [Unknown]
